FAERS Safety Report 15740781 (Version 1)
Quarter: 2018Q4

REPORT INFORMATION
  Report Type: Spontaneous
  Country: FR (occurrence: FR)
  Receive Date: 20181219
  Receipt Date: 20181219
  Transmission Date: 20190205
  Serious: Yes (Other)
  Sender: FDA-Public Use
  Company Number: FR-BRISTOL-MYERS SQUIBB COMPANY-BMS-2018-118010

PATIENT
  Age: 81 Year
  Sex: Male
  Weight: 74 kg

DRUGS (8)
  1. ELIQUIS [Suspect]
     Active Substance: APIXABAN
     Indication: DEEP VEIN THROMBOSIS
     Dosage: 10 MG, DRUG INTERVAL DOSAGE UNIT NUMBER ^1 DAY^
     Route: 048
     Dates: start: 20180703, end: 20181003
  2. PANTOPRAZOLE SODIUM SESQUIHYDRATE [Concomitant]
     Active Substance: PANTOPRAZOLE SODIUM
     Indication: PRODUCT USED FOR UNKNOWN INDICATION
     Dosage: 20 MG, DRUG INTERVAL DOSAGE UNIT NUMBER ^1 DAY^
     Route: 048
     Dates: start: 20180516
  3. CORTANCYL [Concomitant]
     Active Substance: PREDNISONE
     Indication: DERMATOMYOSITIS
     Dosage: 10 MG, DRUG INTERVAL DOSAGE UNIT NUMBER ^1 DAY^
     Route: 048
     Dates: start: 20180514
  4. PERINDOPRIL ARGININE [Concomitant]
     Active Substance: PERINDOPRIL ARGININE
     Indication: PRODUCT USED FOR UNKNOWN INDICATION
     Dosage: 4 MG, DRUG INTERVAL DOSAGE UNIT NUMBER ^1 DAY^
     Route: 048
     Dates: start: 20180517
  5. CALCIDOSE VITAMINE D [Concomitant]
     Active Substance: CALCIUM\CHOLECALCIFEROL
     Indication: PRODUCT USED FOR UNKNOWN INDICATION
     Dosage: 2 DF= 2 T, DRUG INTERVAL DOSAGE UNIT NUMBER ^1 DAY^
     Route: 048
     Dates: start: 20180515
  6. IMUREL                             /00001501/ [Concomitant]
     Active Substance: AZATHIOPRINE SODIUM
     Indication: DERMATOMYOSITIS
     Dosage: 150 MG, DRUG INTERVAL DOSAGE UNIT NUMBER ^1 DAY^
     Route: 048
     Dates: start: 20180518
  7. DAFALGAN [Concomitant]
     Active Substance: ACETAMINOPHEN
     Indication: PRODUCT USED FOR UNKNOWN INDICATION
     Dosage: 1 G, UNK
     Route: 048
  8. XATRAL                             /00975301/ [Concomitant]
     Active Substance: ALFUZOSIN
     Indication: PRODUCT USED FOR UNKNOWN INDICATION
     Dosage: 10 MG, DRUG INTERVAL DOSAGE UNIT NUMBER ^1 DAY^
     Route: 048
     Dates: start: 20180518

REACTIONS (1)
  - Hepatitis cholestatic [Recovered/Resolved]

NARRATIVE: CASE EVENT DATE: 20180919
